FAERS Safety Report 9973331 (Version 1)
Quarter: 2014Q1

REPORT INFORMATION
  Report Type: Spontaneous
  Country: US (occurrence: US)
  Receive Date: 20140306
  Receipt Date: 20140306
  Transmission Date: 20141002
  Serious: No
  Sender: FDA-Public Use
  Company Number: US-ABBVIE-13P-163-1154789-00

PATIENT
  Age: 33 Year
  Sex: Female
  Weight: 69.46 kg

DRUGS (4)
  1. HUMIRA [Suspect]
     Indication: SACROILIITIS
     Dates: start: 201307
  2. HUMIRA [Suspect]
     Indication: ANKYLOSING SPONDYLITIS
  3. ALPRAZOLAM [Concomitant]
     Indication: ANXIETY
  4. NAPRELAN [Concomitant]
     Indication: INFLAMMATION

REACTIONS (9)
  - Amenorrhoea [Not Recovered/Not Resolved]
  - Menstruation delayed [Unknown]
  - Off label use [Unknown]
  - Menstruation delayed [Recovered/Resolved]
  - Breast tenderness [Recovered/Resolved]
  - Arthralgia [Not Recovered/Not Resolved]
  - Constipation [Not Recovered/Not Resolved]
  - Back pain [Not Recovered/Not Resolved]
  - Abdominal pain lower [Not Recovered/Not Resolved]
